FAERS Safety Report 6918076-6 (Version None)
Quarter: 2010Q3

REPORT INFORMATION
  Report Type: 
  Country: None (occurrence: None)
  Receive Date: 20100806
  Receipt Date: 20100726
  Transmission Date: 20110219
  Serious: Yes (Hospitalization)
  Sender: FDA-Public Use
  Company Number: 230305J10GBR

PATIENT
  Age: 60 Year
  Sex: Female

DRUGS (1)
  1. REBIF [Suspect]
     Dosage: 22 MCG
     Dates: start: 20080501

REACTIONS (7)
  - DIABETES MELLITUS INADEQUATE CONTROL [None]
  - FALL [None]
  - GAIT DISTURBANCE [None]
  - GASTRIC INFECTION [None]
  - INFECTION [None]
  - MUSCLE SPASMS [None]
  - MUSCLE SPASTICITY [None]
